FAERS Safety Report 13250792 (Version 2)
Quarter: 2017Q1

REPORT INFORMATION
  Report Type: Report from Study
  Country: JP (occurrence: JP)
  Receive Date: 20170220
  Receipt Date: 20170223
  Transmission Date: 20170428
  Serious: Yes (Hospitalization)
  Sender: FDA-Public Use
  Company Number: JP-CONCORDIA PHARMACEUTICALS INC.-E2B_00008032

PATIENT
  Age: 84 Year
  Sex: Male

DRUGS (8)
  1. REBAMIPIDE [Concomitant]
     Active Substance: REBAMIPIDE
  2. DOMPERIDONE [Concomitant]
     Active Substance: DOMPERIDONE
  3. ZONISAMIDE CAPSULE [Suspect]
     Active Substance: ZONISAMIDE
     Indication: DEMENTIA WITH LEWY BODIES
     Route: 048
     Dates: start: 20160922, end: 20170208
  4. DONEPEZIL. [Concomitant]
     Active Substance: DONEPEZIL
  5. MENESIT [Concomitant]
     Active Substance: CARBIDOPA\LEVODOPA
  6. ZONISAMIDE CAPSULE [Suspect]
     Active Substance: ZONISAMIDE
     Indication: PARKINSONISM
     Dosage: 25 MG, 50 MG, OR PLACEBO
     Route: 048
     Dates: start: 20160630, end: 20160921
  7. BIO-THREE [Concomitant]
     Active Substance: HERBALS
  8. GLACTIV [Concomitant]
     Active Substance: SITAGLIPTIN

REACTIONS (1)
  - Colitis ischaemic [Not Recovered/Not Resolved]

NARRATIVE: CASE EVENT DATE: 20170206
